FAERS Safety Report 6173782-9 (Version None)
Quarter: 2009Q2

REPORT INFORMATION
  Report Type: 
  Country: None (occurrence: None)
  Receive Date: 20090429
  Receipt Date: 20090429
  Transmission Date: 20091009
  Serious: Yes (Other)
  Sender: FDA-Public Use
  Company Number: None

PATIENT
  Age: 68 Year
  Sex: Female
  Weight: 52.1637 kg

DRUGS (1)
  1. LUNESTA [Suspect]
     Indication: INSOMNIA
     Dosage: 3 MG NIGHTLY
     Dates: start: 20051101, end: 20090301

REACTIONS (4)
  - DRUG INEFFECTIVE [None]
  - NEOPLASM MALIGNANT [None]
  - UNEVALUABLE EVENT [None]
  - VISUAL IMPAIRMENT [None]
